FAERS Safety Report 20079053 (Version 3)
Quarter: 2022Q1

REPORT INFORMATION
  Report Type: Report from Study
  Country: US (occurrence: US)
  Receive Date: 20211117
  Receipt Date: 20220214
  Transmission Date: 20220423
  Serious: No
  Sender: FDA-Public Use
  Company Number: US-NOVARTISTESTPH-NVSC2021US261897

PATIENT
  Sex: Female

DRUGS (1)
  1. COSENTYX [Suspect]
     Active Substance: SECUKINUMAB
     Indication: Psoriasis
     Dosage: 300 MG, QMO
     Route: 058

REACTIONS (6)
  - Pruritus [Unknown]
  - Nasopharyngitis [Recovering/Resolving]
  - Upper respiratory tract infection [Unknown]
  - Bronchospasm [Unknown]
  - Cough [Unknown]
  - Sputum increased [Unknown]
